FAERS Safety Report 8831813 (Version 9)
Quarter: 2013Q2

REPORT INFORMATION
  Report Type: Report from Study
  Country: US (occurrence: US)
  Receive Date: 20121009
  Receipt Date: 20130508
  Transmission Date: 20140414
  Serious: Yes (Other)
  Sender: FDA-Public Use
  Company Number: PHEH2012US019651

PATIENT
  Age: 46 Year
  Sex: Female
  Weight: 74.83 kg

DRUGS (7)
  1. GILENYA [Suspect]
     Indication: MULTIPLE SCLEROSIS
     Dosage: 0.5 MG, QD
     Route: 048
     Dates: start: 20120424
  2. ASPIRIN [Concomitant]
     Dosage: 81 MG, QD
  3. VITAMIN D3 [Concomitant]
     Dosage: 2000 IU, QD
  4. GABAPENTIN [Concomitant]
     Dosage: 300 MG, TID
  5. VICODIN [Concomitant]
     Dosage: 1 Q 4-6 HOURS
  6. NAPROXEN [Concomitant]
     Dosage: 220 MG, PRN
  7. ZOLOFT [Concomitant]
     Indication: DEPRESSION
     Dosage: 100 MG, AT BED TIME

REACTIONS (11)
  - Carpal tunnel syndrome [Not Recovered/Not Resolved]
  - Insomnia [Unknown]
  - Burning sensation [Unknown]
  - Arthralgia [Unknown]
  - Multiple sclerosis relapse [Not Recovered/Not Resolved]
  - Malaise [Not Recovered/Not Resolved]
  - Weight decreased [Not Recovered/Not Resolved]
  - Fatigue [Not Recovered/Not Resolved]
  - Gait disturbance [Unknown]
  - Pain [Not Recovered/Not Resolved]
  - Tremor [Unknown]
